FAERS Safety Report 11446913 (Version 1)
Quarter: 2015Q3

REPORT INFORMATION
  Report Type: Spontaneous
  Country: US (occurrence: US)
  Receive Date: 20150831
  Receipt Date: 20150831
  Transmission Date: 20151125
  Serious: No
  Sender: FDA-Public Use
  Company Number: US-ELI_LILLY_AND_COMPANY-US200901000534

PATIENT
  Age: 39 Year
  Sex: Female

DRUGS (6)
  1. TRILEPTAL [Concomitant]
     Active Substance: OXCARBAZEPINE
     Dosage: 600 MG, EACH EVENING
  2. FOLATE [Concomitant]
     Active Substance: FOLATE SODIUM
     Dosage: 1 MG, DAILY (1/D)
     Dates: start: 200810
  3. CYMBALTA [Suspect]
     Active Substance: DULOXETINE HYDROCHLORIDE
     Dosage: 60 MG, UNK
  4. CYMBALTA [Suspect]
     Active Substance: DULOXETINE HYDROCHLORIDE
     Dosage: 20 MG, UNK
  5. TRILEPTAL [Concomitant]
     Active Substance: OXCARBAZEPINE
     Indication: SEIZURE
     Dosage: 300 MG, EACH MORNING
  6. TRAZODONE [Concomitant]
     Active Substance: TRAZODONE HYDROCHLORIDE
     Indication: INSOMNIA
     Dosage: UNK, EACH EVENING

REACTIONS (2)
  - Exposure during pregnancy [Not Recovered/Not Resolved]
  - Drug withdrawal syndrome [Unknown]

NARRATIVE: CASE EVENT DATE: 200809
